FAERS Safety Report 20240399 (Version 1)
Quarter: 2021Q4

REPORT INFORMATION
  Report Type: Report from Study
  Country: GB (occurrence: GB)
  Receive Date: 20211228
  Receipt Date: 20211228
  Transmission Date: 20220303
  Serious: Yes (Death, Life-Threatening, Hospitalization, Other)
  Sender: FDA-Public Use
  Company Number: GB-PFIZER INC-202101357559

PATIENT
  Age: 69 Year
  Sex: Female
  Weight: 61.4 kg

DRUGS (11)
  1. CRIZOTINIB [Suspect]
     Active Substance: CRIZOTINIB
     Dosage: 250 MG, 2X/DAY CYCLE 1
     Route: 048
     Dates: start: 20210928, end: 20211008
  2. LEVOTHYROXINE [Concomitant]
     Active Substance: LEVOTHYROXINE
     Indication: Hypothyroidism
     Dosage: 100 MG, 1X/DAY
     Route: 048
     Dates: start: 2005
  3. BISOPROLOL [Concomitant]
     Active Substance: BISOPROLOL
     Indication: Vascular graft
     Dosage: 2.5 MG, 1X/DAY
     Route: 048
     Dates: start: 20070706
  4. OMEPRAZOLE [Concomitant]
     Active Substance: OMEPRAZOLE
     Indication: Prophylaxis
     Dosage: 20 MG, 1X/DAY
     Route: 048
     Dates: start: 20210101
  5. COD LIVER OIL [Concomitant]
     Active Substance: COD LIVER OIL
     Indication: Nutritional supplementation
     Dosage: 100 MG, DAILY
     Route: 048
     Dates: start: 2007
  6. ASPIRIN [Concomitant]
     Active Substance: ASPIRIN
     Indication: Vascular graft
     Dosage: 75 MG, 1X/DAY
     Route: 048
     Dates: start: 20070706
  7. ADCAL [CALCIUM CARBONATE] [Concomitant]
     Indication: Prophylaxis
     Dosage: 1500 MG, 1X/DAY
     Route: 048
     Dates: start: 20210923
  8. ACETAMINOPHEN [Concomitant]
     Active Substance: ACETAMINOPHEN
     Indication: Analgesic therapy
     Dosage: 1.0 G, AS NEEDED
     Route: 048
     Dates: start: 20200101
  9. ORAMORPH SR SUSTAINED RELEASE [Concomitant]
     Active Substance: MORPHINE SULFATE
     Indication: Analgesic therapy
     Dosage: 2.5 MG, AS NEEDED
     Route: 048
     Dates: start: 20200101
  10. LOPERAMIDE [Concomitant]
     Active Substance: LOPERAMIDE
     Indication: Diarrhoea
     Dosage: 2 MG, 1X/DAY
     Route: 048
     Dates: start: 20211001
  11. DENOSUMAB [Concomitant]
     Active Substance: DENOSUMAB
     Indication: Metastases to bone
     Dosage: 120 MG EVERY 4 WEEKS
     Route: 058
     Dates: start: 20200929

REACTIONS (3)
  - Embolism [Unknown]
  - Pneumonia [Unknown]
  - Dyspnoea [Fatal]

NARRATIVE: CASE EVENT DATE: 20211008
